FAERS Safety Report 16468912 (Version 1)
Quarter: 2019Q3

REPORT INFORMATION
  Report Type: Spontaneous
  Country: US (occurrence: US)
  Receive Date: 20190621
  Receipt Date: 20190621
  Transmission Date: 20191004
  Serious: No
  Sender: FDA-Public Use
  Company Number: None

PATIENT
  Age: 4 Year

DRUGS (1)
  1. PEG/L-ASPARAGINASE [Suspect]
     Active Substance: PEGASPARGASE
     Indication: ACUTE LYMPHOCYTIC LEUKAEMIA
     Route: 041
     Dates: start: 20190507, end: 20190507

REACTIONS (8)
  - Swelling face [None]
  - Discomfort [None]
  - Crying [None]
  - Micturition urgency [None]
  - Ammonia abnormal [None]
  - Infusion related reaction [None]
  - Retching [None]
  - Restlessness [None]

NARRATIVE: CASE EVENT DATE: 20190507
